FAERS Safety Report 23666326 (Version 3)
Quarter: 2024Q2

REPORT INFORMATION
  Report Type: Report from Study
  Country: DE (occurrence: DE)
  Receive Date: 20240324
  Receipt Date: 20240514
  Transmission Date: 20240716
  Serious: No
  Sender: FDA-Public Use
  Company Number: DE-JNJFOC-20240349067

PATIENT
  Age: 36 Year
  Sex: Female

DRUGS (3)
  1. SPRAVATO [Suspect]
     Active Substance: ESKETAMINE
     Indication: Major depression
     Dates: start: 20231205
  2. SPRAVATO [Suspect]
     Active Substance: ESKETAMINE
     Dosage: DOSAGE FREQUENCY FROM WEEK 5 WAS ONCE A WEEK.
  3. SPRAVATO [Suspect]
     Active Substance: ESKETAMINE
     Dosage: DOSAGE FREQUENCY FROM WEEK 9 WAS EVERY 2 WEEKS

REACTIONS (1)
  - Nausea [Recovered/Resolved]
